FAERS Safety Report 9135086 (Version 3)
Quarter: 2013Q2

REPORT INFORMATION
  Report Type: Spontaneous
  Country: US (occurrence: US)
  Receive Date: 20130304
  Receipt Date: 20130603
  Transmission Date: 20140414
  Serious: Yes (Other)
  Sender: FDA-Public Use
  Company Number: US-ASTELLAS-2013US002159

PATIENT
  Age: 84 Year
  Sex: Male
  Weight: 68 kg

DRUGS (13)
  1. MYRBETRIQ [Suspect]
     Indication: HYPERTONIC BLADDER
     Dosage: 25 MG, UID/QD
     Route: 048
     Dates: start: 20130211, end: 20130211
  2. MYRBETRIQ [Suspect]
     Indication: AUTOMATIC BLADDER
     Dosage: 25 MG, UID/QD
     Route: 048
     Dates: start: 20130213
  3. DILTIAZEM HYDROCHLORIDE [Concomitant]
     Indication: CARDIAC DISORDER
     Dosage: 360 MG, UID/QD
     Route: 048
  4. FINASTERIDE [Concomitant]
     Indication: PROSTATE CANCER
     Dosage: 5 MG, UID/QD
     Route: 048
  5. PRAVASTATIN [Concomitant]
     Indication: BLOOD CHOLESTEROL
     Dosage: 10 MG, UID/QD
     Route: 048
  6. COENZYME Q10 [Concomitant]
     Indication: PRODUCT USED FOR UNKNOWN INDICATION
     Dosage: 100 MG, UID/QD
     Route: 048
  7. GLUCOSAMINE HYDROCHLORIDE, METHYL-SULFONYL-METHANE [Concomitant]
     Indication: ARTHROPATHY
     Dosage: 1500 MG, UID/QD
     Route: 048
  8. OMEPRAZOLE [Concomitant]
     Indication: GASTROOESOPHAGEAL REFLUX DISEASE
     Dosage: 20 MG, UID/QD
     Route: 048
  9. WARFARIN SODIUM [Concomitant]
     Indication: ANTICOAGULANT THERAPY
     Dosage: 6 MG 5 TIMES WEEKLY AND 3MG 2 TIMES WEEKLY
     Route: 048
  10. CALCIUM CITRATE WITH VITAMIN D [Concomitant]
     Indication: OSTEOPOROSIS
     Dosage: 360 MG, UID/QD
     Route: 048
  11. NIACIN SLOW RELEASE [Concomitant]
     Indication: BLOOD TRIGLYCERIDES
     Dosage: 500 MG, UID/QD
     Route: 048
  12. MELATONIN [Concomitant]
     Indication: INSOMNIA
     Dosage: 3 MG, QHS
     Route: 048
  13. COUMADIN                           /00014802/ [Concomitant]
     Indication: PRODUCT USED FOR UNKNOWN INDICATION
     Dosage: UNK
     Route: 065

REACTIONS (3)
  - Inappropriate schedule of drug administration [Unknown]
  - Off label use [Unknown]
  - Haematochezia [Unknown]
